FAERS Safety Report 8804774 (Version 1)
Quarter: 2012Q4

REPORT INFORMATION
  Report Type: 
  Country: IN (occurrence: IN)
  Receive Date: 20120924
  Receipt Date: 20120924
  Transmission Date: 20130627
  Serious: Yes (Death, Other)
  Sender: FDA-Public Use
  Company Number: PHHY2012IN082285

PATIENT

DRUGS (1)
  1. SEBIVO [Suspect]
     Indication: HEPATITIS B

REACTIONS (4)
  - Hepatic encephalopathy [Fatal]
  - General physical health deterioration [Unknown]
  - Peritonitis [Unknown]
  - Renal failure [Unknown]
